FAERS Safety Report 13101455 (Version 1)
Quarter: 2017Q1

REPORT INFORMATION
  Report Type: Spontaneous
  Country: US (occurrence: US)
  Receive Date: 20170110
  Receipt Date: 20170110
  Transmission Date: 20170428
  Serious: No
  Sender: FDA-Public Use
  Company Number: US-GLAXOSMITHKLINE-US2017GSK002031

PATIENT
  Sex: Female

DRUGS (14)
  1. MUPIROCIN CALCIUM CREAM [Suspect]
     Active Substance: MUPIROCIN CALCIUM
     Indication: FUNGAL SKIN INFECTION
     Dosage: UNK, PRN
  2. ASPIRIN EC [Concomitant]
     Active Substance: ASPIRIN
  3. MUPIROCIN. [Suspect]
     Active Substance: MUPIROCIN
     Indication: PRODUCT USED FOR UNKNOWN INDICATION
  4. NATEGLINIDE. [Concomitant]
     Active Substance: NATEGLINIDE
  5. BACLOFEN. [Concomitant]
     Active Substance: BACLOFEN
  6. LYRICA [Concomitant]
     Active Substance: PREGABALIN
  7. EFFEXOR [Concomitant]
     Active Substance: VENLAFAXINE HYDROCHLORIDE
  8. HYDROCODONE/ACETAMINOPHEN [Concomitant]
     Active Substance: ACETAMINOPHEN\HYDROCODONE
  9. MECLIZINE [Concomitant]
     Active Substance: MECLIZINE HYDROCHLORIDE
  10. NORVASC [Concomitant]
     Active Substance: AMLODIPINE BESYLATE
  11. HYDRALAZINE [Concomitant]
     Active Substance: HYDRALAZINE HYDROCHLORIDE
  12. SYNTHROID [Concomitant]
     Active Substance: LEVOTHYROXINE SODIUM
  13. VITAMIN D3 [Concomitant]
     Active Substance: CHOLECALCIFEROL
  14. CARVEDILOL TABLET [Concomitant]
     Active Substance: CARVEDILOL

REACTIONS (4)
  - Product use issue [Unknown]
  - Drug hypersensitivity [Unknown]
  - Off label use [Unknown]
  - Rash [Unknown]
